FAERS Safety Report 26209170 (Version 1)
Quarter: 2025Q4

REPORT INFORMATION
  Report Type: Other
  Country: CN (occurrence: CN)
  Receive Date: 20251229
  Receipt Date: 20251229
  Transmission Date: 20260117
  Serious: Yes (Hospitalization)
  Sender: INCYTE
  Company Number: CN-002147023-NVSC2025CN194952

PATIENT
  Age: 68 Year
  Weight: 55 kg

DRUGS (2)
  1. RUXOLITINIB [Suspect]
     Active Substance: RUXOLITINIB
     Indication: Acute graft versus host disease
     Dosage: 10.000 MG, BID
     Route: 061
  2. NOXAFIL [Suspect]
     Active Substance: POSACONAZOLE
     Indication: Acute graft versus host disease
     Dosage: 5.000 ML, TID
     Route: 061

REACTIONS (1)
  - Hepatic enzyme increased [Unknown]
